FAERS Safety Report 6162299-3 (Version None)
Quarter: 2009Q2

REPORT INFORMATION
  Report Type: 
  Country: None (occurrence: None)
  Receive Date: 20090421
  Receipt Date: 20090417
  Transmission Date: 20091009
  Serious: Yes (Other)
  Sender: FDA-Public Use
  Company Number: US-BRISTOL-MYERS SQUIBB COMPANY-14592893

PATIENT
  Age: 52 Year
  Sex: Male
  Weight: 70 kg

DRUGS (3)
  1. CISPLATIN [Suspect]
     Indication: OESOPHAGEAL CARCINOMA
     Dosage: FIRST DOSE ON 04NOV08
     Dates: start: 20081209, end: 20081209
  2. TAXOL [Suspect]
     Indication: OESOPHAGEAL CARCINOMA
     Dosage: FIRST DOSE ON 04NOV08
     Dates: start: 20081209, end: 20081209
  3. RADIATION THERAPY [Suspect]
     Indication: OESOPHAGEAL CARCINOMA
     Dosage: 1 DF=5040CGY NO.OF FRACTIONS=28 NO. OF ELAPSED DAYS= 49 EXTERNAL BEAM NOS LAST DOSE ON 16DEC08
     Dates: start: 20081104

REACTIONS (1)
  - PULMONARY EMBOLISM [None]
